FAERS Safety Report 18503855 (Version 2)
Quarter: 2020Q4

REPORT INFORMATION
  Report Type: Report from Study
  Country: DE (occurrence: DE)
  Receive Date: 20201113
  Receipt Date: 20201211
  Transmission Date: 20210114
  Serious: Yes (Other)
  Sender: FDA-Public Use
  Company Number: DE-BAUSCH-BL-2020-031964

PATIENT
  Age: 70 Year
  Sex: Male
  Weight: 90 kg

DRUGS (61)
  1. DIAZEPAM. [Suspect]
     Active Substance: DIAZEPAM
     Indication: SEIZURE
     Route: 042
     Dates: start: 19940922, end: 19940922
  2. ERYFER (FERROUS SULFATE) [Suspect]
     Active Substance: FERROUS SULFATE
     Indication: NUTRITIONAL SUPPLEMENTATION
     Route: 048
     Dates: start: 19941005, end: 19941006
  3. SPIZEF (CEFUROXIME) [Suspect]
     Active Substance: CEFUROXIME
     Dosage: 2 SEPARATED DOSES
     Route: 042
     Dates: start: 19940923, end: 19940926
  4. ULCOGANT [Suspect]
     Active Substance: SUCRALFATE
     Indication: PRODUCT USED FOR UNKNOWN INDICATION
     Dosage: 3 SEPARATED DOSES
     Route: 048
     Dates: start: 19940926, end: 19941004
  5. ACETYLCYSTEINE. [Suspect]
     Active Substance: ACETYLCYSTEINE
     Indication: COUGH
     Route: 048
     Dates: start: 19940916, end: 19940919
  6. TAGAMET [Concomitant]
     Active Substance: CIMETIDINE
     Indication: HYPERSENSITIVITY
     Dosage: 2 SEPARATED DOSES
     Route: 048
     Dates: start: 19941008
  7. THROMBOPHOB (GERMANY) [Concomitant]
     Active Substance: HEPARIN SODIUM
     Indication: THROMBOSIS PROPHYLAXIS
     Dosage: VARIABLE DOSE
     Route: 058
     Dates: end: 19940922
  8. URBASON [Concomitant]
     Active Substance: METHYLPREDNISOLONE
     Indication: HYPERSENSITIVITY
     Route: 065
     Dates: start: 19941008
  9. BEPANTHEN (DEXPANTHENOL) [Concomitant]
     Active Substance: DEXPANTHENOL
     Indication: OROPHARYNGEAL PAIN
     Dosage: INTERMITTENT DOSING
     Route: 048
     Dates: end: 19940914
  10. DIAZEPAM. [Suspect]
     Active Substance: DIAZEPAM
     Route: 042
     Dates: start: 19940923, end: 19940923
  11. NAC [ACETYLCYSTEINE] [Suspect]
     Active Substance: ACETYLCYSTEINE
     Indication: PRODUCT USED FOR UNKNOWN INDICATION
     Route: 048
     Dates: start: 19940916, end: 19940926
  12. ACETYLCYSTEINE. [Suspect]
     Active Substance: ACETYLCYSTEINE
     Dosage: 3 SEPARATED DOSES
     Route: 048
     Dates: start: 19940926, end: 19941004
  13. TAVEGIL [Concomitant]
     Active Substance: CLEMASTINE FUMARATE
     Indication: HYPERSENSITIVITY
     Dosage: 2 SEPARATED DOSES
     Route: 048
     Dates: start: 19941008
  14. VALIUM [Suspect]
     Active Substance: DIAZEPAM
     Indication: SEIZURE
     Route: 042
     Dates: start: 19940922, end: 19940922
  15. EPANUTIN PARENTRAL [Suspect]
     Active Substance: PHENYTOIN SODIUM
     Indication: SEIZURE PROPHYLAXIS
     Route: 042
     Dates: start: 19940919, end: 19940921
  16. HAES-STERIL [Suspect]
     Active Substance: HETASTARCH
     Indication: HYPOVOLAEMIA
     Route: 042
     Dates: start: 19940923, end: 19940926
  17. SPIZEF (CEFUROXIME) [Suspect]
     Active Substance: CEFUROXIME
     Dosage: 2 SEPARATED DOSES
     Route: 042
     Dates: start: 19940919, end: 19940919
  18. KALIUMCHLORID [Concomitant]
     Active Substance: POTASSIUM CHLORIDE
     Indication: ELECTROLYTE SUBSTITUTION THERAPY
     Route: 042
     Dates: start: 19940919, end: 19940920
  19. TRAPANAL [Concomitant]
     Active Substance: THIOPENTAL SODIUM
     Indication: INDUCTION OF ANAESTHESIA
     Route: 042
     Dates: start: 19940919, end: 19940919
  20. ADALAT [Concomitant]
     Active Substance: NIFEDIPINE
     Indication: HYPERTONIA
     Dosage: INTERMITTENT DOSING
     Route: 060
     Dates: end: 19940925
  21. FENTANYL. [Concomitant]
     Active Substance: FENTANYL
     Indication: INDUCTION OF ANAESTHESIA
     Dosage: 0.1 (UNIT UNSPECIFIED). 5 SEPARATED DOSES
     Route: 042
     Dates: start: 19940919, end: 19940919
  22. FORTECORTIN [Suspect]
     Active Substance: DEXAMETHASONE
     Indication: PROPHYLAXIS
     Route: 042
     Dates: start: 19940919, end: 19940924
  23. TEGRETAL [Suspect]
     Active Substance: CARBAMAZEPINE
     Indication: SEIZURE PROPHYLAXIS
     Route: 048
     Dates: start: 19940920
  24. AKRINOR [Concomitant]
     Active Substance: CAFEDRINE HYDROCHLORIDE\THEODRENALINE
     Indication: HYPOTENSION
     Dates: start: 19940919, end: 19940919
  25. TUTOFUSIN OPS [Concomitant]
     Indication: ELECTROLYTE SUBSTITUTION THERAPY
     Route: 042
     Dates: start: 19940920, end: 19940926
  26. CATAPRESSAN [Concomitant]
     Active Substance: CLONIDINE
     Indication: HYPERTONIA
     Dosage: VARIABLE DOSES GIVEN ON 10 AND 13 SEP.
     Route: 058
     Dates: end: 19940913
  27. DICLOFENAC [Concomitant]
     Active Substance: DICLOFENAC
     Indication: PRODUCT USED FOR UNKNOWN INDICATION
     Route: 048
     Dates: start: 19940913, end: 19940913
  28. TEGRETAL 200 [Suspect]
     Active Substance: CARBAMAZEPINE
     Indication: SEIZURE
     Dosage: QID
     Route: 048
     Dates: start: 19940920
  29. HEPARIN SODIUM. [Suspect]
     Active Substance: HEPARIN SODIUM
     Indication: PRODUCT USED FOR UNKNOWN INDICATION
     Dosage: INJECTION 5,000 IU (3 SEPARATED DOSES)
     Route: 058
     Dates: start: 19940922, end: 19940926
  30. SPIZEF (CEFUROXIME) [Suspect]
     Active Substance: CEFUROXIME
     Indication: PRODUCT USED FOR UNKNOWN INDICATION
     Route: 042
  31. CODEINE\PHENYLTOLOXAMINE [Suspect]
     Active Substance: CODEINE\PHENYLTOLOXAMINE
     Indication: COUGH
     Dosage: DOSE IRREGULAR OR UNKNOWN
     Route: 048
     Dates: start: 19941004, end: 19941006
  32. DOBUTREX [Concomitant]
     Active Substance: DOBUTAMINE HYDROCHLORIDE
     Indication: CARDIAC DISORDER
     Route: 042
     Dates: start: 19940919, end: 19940920
  33. ATOSIL (PROMETHAZINE HYDROCHLORIDE) [Concomitant]
     Active Substance: PROMETHAZINE HYDROCHLORIDE
     Indication: RESTLESSNESS
     Route: 042
     Dates: start: 19940920, end: 19940920
  34. TRACRIUM [Concomitant]
     Active Substance: ATRACURIUM BESYLATE
     Indication: INDUCTION OF ANAESTHESIA
     Route: 042
     Dates: start: 19940919, end: 19940919
  35. FORTECORTIN [Concomitant]
     Active Substance: DEXAMETHASONE
     Indication: PROPHYLAXIS
     Route: 048
     Dates: end: 19940919
  36. CONTRADOL [ACETAMINOPHEN] [Suspect]
     Active Substance: ACETAMINOPHEN
     Indication: PAIN
     Route: 065
     Dates: start: 19940917, end: 19940917
  37. ELOBACT 250 [Suspect]
     Active Substance: CEFUROXIME AXETIL
     Indication: PRODUCT USED FOR UNKNOWN INDICATION
     Dosage: 250 (UNSPECIFIED UNIT),BID (2 SEPARATED DOSES)
     Route: 048
     Dates: start: 19940926, end: 19941006
  38. CODIPRONT [Suspect]
     Active Substance: CODEINE\PHENYLTOLOXAMINE
     Indication: PRODUCT USED FOR UNKNOWN INDICATION
     Route: 048
  39. ACETYLCYSTEINE. [Suspect]
     Active Substance: ACETYLCYSTEINE
     Dosage: 2 SEPARATED DOSES
     Route: 048
     Dates: start: 19940921, end: 19940926
  40. ATROPIN [Concomitant]
     Active Substance: ATROPINE
     Indication: INDUCTION OF ANAESTHESIA
     Route: 042
     Dates: start: 19940919, end: 19940919
  41. ADALAT [Concomitant]
     Active Substance: NIFEDIPINE
     Indication: HYPERTONIA
     Dosage: 2 SEPARATED DOSES
     Route: 048
     Dates: end: 19940925
  42. ARELIX [Concomitant]
     Active Substance: PIRETANIDE
     Indication: CARDIAC FAILURE
     Route: 048
  43. OSMOFUNDIN [MANNITOL] [Concomitant]
     Active Substance: MANNITOL
     Indication: PROPHYLAXIS
     Route: 042
     Dates: start: 19940919, end: 19940919
  44. DEHYDROBENZPERIDOL [Concomitant]
     Active Substance: DROPERIDOL
     Indication: INDUCTION OF ANAESTHESIA
     Dosage: 3 SEPARATED DOSES
     Route: 042
     Dates: start: 19940919, end: 19940919
  45. TRANXILIUM [Suspect]
     Active Substance: CLORAZEPATE DIPOTASSIUM
     Route: 048
     Dates: start: 19940918, end: 19940918
  46. COTRIM FORTE [Suspect]
     Active Substance: SULFAMETHOXAZOLE\TRIMETHOPRIM
     Indication: INFECTION
     Dosage: 2 SEPARATED DOSES
     Route: 048
     Dates: start: 19940913, end: 19940918
  47. ZENTROPIL [Suspect]
     Active Substance: PHENYTOIN
     Indication: SEIZURE PROPHYLAXIS
     Route: 048
     Dates: start: 19940830, end: 19940919
  48. RIVOTRIL [Suspect]
     Active Substance: CLONAZEPAM
     Indication: SEIZURE
     Route: 065
     Dates: start: 19940922, end: 19940922
  49. CODEINE\PHENYLTOLOXAMINE [Suspect]
     Active Substance: CODEINE\PHENYLTOLOXAMINE
     Route: 048
     Dates: start: 19940912, end: 19940913
  50. CLONAZEPAM. [Suspect]
     Active Substance: CLONAZEPAM
     Indication: SEIZURE
     Route: 042
     Dates: start: 19940922, end: 19940922
  51. ISOFLURAN [Concomitant]
     Active Substance: ISOFLURANE
     Indication: INDUCTION OF ANAESTHESIA
     Dates: start: 19940919, end: 19940919
  52. SUCCINYL [Concomitant]
     Active Substance: SUCCINYLCHOLINE CHLORIDE
     Indication: INDUCTION OF ANAESTHESIA
     Route: 042
     Dates: start: 19940919, end: 19940919
  53. EBRANTIL [Concomitant]
     Active Substance: URAPIDIL
     Indication: HYPERTENSION
     Dosage: 4 SEPARATED DOSES
     Route: 042
     Dates: start: 19940919, end: 19940919
  54. LAUGHING GAS [Concomitant]
     Active Substance: NITROUS OXIDE
     Indication: INDUCTION OF ANAESTHESIA
     Dates: start: 19940919, end: 19940919
  55. SPASURET [Concomitant]
     Active Substance: FLAVOXATE HYDROCHLORIDE
     Indication: BLADDER DISORDER
     Dosage: 3 SEPARATED DOSES
     Route: 048
     Dates: start: 19940914, end: 19940918
  56. HALOTHANE. [Concomitant]
     Active Substance: HALOTHANE
     Indication: INDUCTION OF ANAESTHESIA
     Dates: start: 19940919, end: 19940919
  57. LASIX [Suspect]
     Active Substance: FUROSEMIDE
     Indication: OEDEMA
     Route: 042
     Dates: start: 19940919, end: 19940920
  58. TRANXILIUM [Suspect]
     Active Substance: CLORAZEPATE DIPOTASSIUM
     Indication: PREMEDICATION
     Route: 048
     Dates: start: 19940912, end: 19940912
  59. TRANXILIUM [Suspect]
     Active Substance: CLORAZEPATE DIPOTASSIUM
     Route: 048
     Dates: start: 19940913, end: 19940913
  60. PERIAMIN X [Suspect]
     Active Substance: AMINO ACIDS\ELECTROLYTES NOS\XYLITOL
     Indication: PRODUCT USED FOR UNKNOWN INDICATION
     Route: 042
     Dates: start: 19940922, end: 19940924
  61. BENADRYL [Concomitant]
     Active Substance: DIPHENHYDRAMINE HYDROCHLORIDE
     Indication: COUGH
     Dosage: INTERMITTENT DOSING
     Route: 048
     Dates: end: 19941006

REACTIONS (15)
  - Pneumonia [Unknown]
  - Leukocytosis [Unknown]
  - Pyrexia [Recovering/Resolving]
  - Blood urea increased [Unknown]
  - Blood lactate dehydrogenase increased [Unknown]
  - Alanine aminotransferase increased [Unknown]
  - Gamma-glutamyltransferase increased [Unknown]
  - Blister [Recovering/Resolving]
  - Rash [Recovering/Resolving]
  - Lymphocytosis [Unknown]
  - Conjunctivitis [Recovering/Resolving]
  - Toxic epidermal necrolysis [Unknown]
  - Stevens-Johnson syndrome [Recovering/Resolving]
  - Mucosal erosion [Recovering/Resolving]
  - Aspartate aminotransferase increased [Unknown]

NARRATIVE: CASE EVENT DATE: 19941006
